FAERS Safety Report 7884575-6 (Version None)
Quarter: 2011Q4

REPORT INFORMATION
  Report Type: 
  Country: None (occurrence: None)
  Receive Date: 20111102
  Receipt Date: 20111102
  Transmission Date: 20120403
  Serious: No
  Sender: FDA-Public Use
  Company Number: US-B.I. PHARMACEUTICALS,INC./RIDGEFIELD-2011-BP-16479BP

PATIENT
  Age: 77 Year
  Sex: Male

DRUGS (2)
  1. PRADAXA [Suspect]
     Dates: start: 20110301
  2. MULTAQ [Suspect]
     Dates: start: 20110301

REACTIONS (5)
  - ACTIVATED PARTIAL THROMBOPLASTIN TIME PROLONGED [None]
  - CREATININE RENAL CLEARANCE INCREASED [None]
  - PROTHROMBIN TIME PROLONGED [None]
  - EPISTAXIS [None]
  - INTERNATIONAL NORMALISED RATIO INCREASED [None]
